FAERS Safety Report 6571439-3 (Version None)
Quarter: 2010Q1

REPORT INFORMATION
  Report Type: 
  Country: None (occurrence: None)
  Receive Date: 20100205
  Receipt Date: 20100127
  Transmission Date: 20100710
  Serious: Yes (Other)
  Sender: FDA-Public Use
  Company Number: US-PFIZER INC-2010011808

PATIENT
  Sex: Female
  Weight: 68.027 kg

DRUGS (8)
  1. LIPITOR [Suspect]
     Indication: BLOOD CHOLESTEROL INCREASED
     Dosage: 10 MG, 1X/DAY
     Route: 048
     Dates: start: 20100101
  2. LIPITOR [Suspect]
     Indication: CEREBROVASCULAR ACCIDENT
  3. CRESTOR [Suspect]
     Indication: ATRIAL FIBRILLATION
     Dosage: 20 MG, 1X/DAY
     Route: 048
  4. ZOCOR [Suspect]
     Indication: ATRIAL FIBRILLATION
     Dosage: 40 MG, 1X/DAY
     Route: 048
     Dates: start: 20090901
  5. WARFARIN SODIUM [Concomitant]
     Indication: ATRIAL FIBRILLATION
     Dosage: 5 MG, 1X/DAY
     Route: 048
     Dates: start: 20090901
  6. DIGOXIN [Concomitant]
     Indication: ATRIAL FIBRILLATION
     Dosage: 0.125 MG, 1X/DAY
     Dates: start: 20090901
  7. VALSARTAN [Concomitant]
     Indication: ATRIAL FIBRILLATION
     Dosage: 160 MG, 1X/DAY
     Route: 048
     Dates: start: 20090901
  8. METOPROLOL TARTRATE [Concomitant]
     Indication: CARDIAC DISORDER
     Dosage: 25 MG, 1X/DAY
     Route: 048
     Dates: start: 20090901

REACTIONS (3)
  - CEREBROVASCULAR ACCIDENT [None]
  - FATIGUE [None]
  - MYALGIA [None]
